FAERS Safety Report 8788534 (Version 6)
Quarter: 2013Q4

REPORT INFORMATION
  Report Type: Report from Study
  Country: US (occurrence: US)
  Receive Date: 20120914
  Receipt Date: 20131007
  Transmission Date: 20140711
  Serious: No
  Sender: FDA-Public Use
  Company Number: US-VERTEX PHARMACEUTICAL INC.-AE-2012-010923

PATIENT
  Age: 53 Year
  Sex: Male
  Weight: 101 kg

DRUGS (6)
  1. VX-950 (TELAPREVIR) [Suspect]
     Indication: HEPATITIS C
     Dosage: UNK
     Route: 048
     Dates: start: 20120710, end: 20121002
  2. RIBAVIRIN [Suspect]
     Indication: HEPATITIS C
     Dosage: 1200 MG, AS DIRECTED
     Dates: start: 20120710, end: 20121215
  3. PEGASYS [Suspect]
     Indication: HEPATITIS C
     Dosage: 180 ?G/0.5ML, QW
     Dates: start: 20120710, end: 20121215
  4. HYDROCORTISONE [Concomitant]
     Route: 061
  5. PERCOCET [Concomitant]
     Dosage: 5-325MG, PRN
  6. ATIVAN [Concomitant]
     Dosage: 2 MG, BID

REACTIONS (10)
  - Pyrexia [Not Recovered/Not Resolved]
  - Chills [Not Recovered/Not Resolved]
  - Hepatitis C [Not Recovered/Not Resolved]
  - Fatigue [Not Recovered/Not Resolved]
  - Asthenia [Not Recovered/Not Resolved]
  - Oedema peripheral [Not Recovered/Not Resolved]
  - Rash pruritic [Recovered/Resolved]
  - Anorectal discomfort [Not Recovered/Not Resolved]
  - Pruritus [Recovered/Resolved]
  - Dry skin [Not Recovered/Not Resolved]
